FAERS Safety Report 19764258 (Version 2)
Quarter: 2021Q4

REPORT INFORMATION
  Report Type: Spontaneous
  Country: US (occurrence: US)
  Receive Date: 20210830
  Receipt Date: 20211210
  Transmission Date: 20220303
  Serious: No
  Sender: FDA-Public Use
  Company Number: US-SA-SAC20210826000385

PATIENT
  Age: 47 Year
  Sex: Female

DRUGS (7)
  1. DUPIXENT [Suspect]
     Active Substance: DUPILUMAB
     Indication: Dermatitis atopic
     Dosage: 300 MG, QOW
     Route: 058
  2. DUPIXENT [Suspect]
     Active Substance: DUPILUMAB
     Dosage: 300 MG, QOW
     Route: 058
  3. AZITHROMYCIN [Concomitant]
     Active Substance: AZITHROMYCIN
  4. AZITHROMYCIN [Concomitant]
     Active Substance: AZITHROMYCIN
     Dosage: UNK
  5. NEOMYCIN [Concomitant]
     Active Substance: NEOMYCIN
     Dosage: UNK
  6. NEOMYCIN [Concomitant]
     Active Substance: NEOMYCIN
  7. XIIDRA [Concomitant]
     Active Substance: LIFITEGRAST
     Dosage: UNK

REACTIONS (7)
  - Stress [Unknown]
  - COVID-19 [Unknown]
  - SARS-CoV-2 antibody test positive [Unknown]
  - Pain [Unknown]
  - Eczema [Unknown]
  - Dry eye [Unknown]
  - Headache [Unknown]

NARRATIVE: CASE EVENT DATE: 20210101
